FAERS Safety Report 19525071 (Version 1)
Quarter: 2021Q3

REPORT INFORMATION
  Report Type: Spontaneous
  Country: CN (occurrence: CN)
  Receive Date: 20210712
  Receipt Date: 20210712
  Transmission Date: 20211014
  Serious: Yes (Other)
  Sender: FDA-Public Use
  Company Number: CN-BAXTER-2021BAX019802

PATIENT
  Age: 44 Year
  Sex: Female
  Weight: 66 kg

DRUGS (6)
  1. UROMITEXAN [Suspect]
     Active Substance: MESNA
     Indication: PROPHYLAXIS
     Dosage: DAY 1?3; 1 CYCLE OF CHEMOTHERAPY: REGIMEN A IN HYPERCAVD REGIMEN
     Route: 065
     Dates: start: 20210528, end: 20210530
  2. PIRARUBICIN HYDROCHLORIDE [Suspect]
     Active Substance: PIRARUBICIN HYDROCHLORIDE
     Indication: ANGIOIMMUNOBLASTIC T-CELL LYMPHOMA
     Dosage: DAY 4; 1 CYCLE OF CHEMOTHERAPY: REGIMEN A IN HYPERCAVD REGIMEN
     Route: 041
     Dates: start: 20210531, end: 20210531
  3. PIRARUBICIN HYDROCHLORIDE [Suspect]
     Active Substance: PIRARUBICIN HYDROCHLORIDE
     Dosage: DAY 5?6; 1 CYCLE OF CHEMOTHERAPY: REGIMEN A IN HYPERCAVD REGIMEN
     Route: 041
     Dates: start: 20210601, end: 20210602
  4. DEXAMETHASONE. [Suspect]
     Active Substance: DEXAMETHASONE
     Indication: ANGIOIMMUNOBLASTIC T-CELL LYMPHOMA
     Dosage: DAY 1?4, 1 CYCLE OF CHEMOTHERAPY: REGIMEN A IN HYPERCAVD REGIMEN
     Route: 065
     Dates: start: 20210528, end: 20210531
  5. ENDOXAN [Suspect]
     Active Substance: CYCLOPHOSPHAMIDE
     Indication: ANGIOIMMUNOBLASTIC T-CELL LYMPHOMA
     Dosage: DAY 1?3, 1 CYCLE OF CHEMOTHERAPY: REGIMEN A IN HYPERCAVD REGIMEN
     Route: 041
     Dates: start: 20210528, end: 20210530
  6. VINDESINE SULFATE [Suspect]
     Active Substance: VINDESINE SULFATE
     Indication: ANGIOIMMUNOBLASTIC T-CELL LYMPHOMA
     Dosage: DAY 4, 1 CYCLE OF CHEMOTHERAPY: REGIMEN A IN HYPERCAVD REGIMEN
     Route: 041
     Dates: start: 20210531, end: 20210531

REACTIONS (1)
  - Myelosuppression [Recovering/Resolving]

NARRATIVE: CASE EVENT DATE: 20210606
